FAERS Safety Report 20367804 (Version 2)
Quarter: 2022Q2

REPORT INFORMATION
  Report Type: Report from Study
  Country: US (occurrence: US)
  Receive Date: 20220124
  Receipt Date: 20220615
  Transmission Date: 20220721
  Serious: Yes (Hospitalization, Other)
  Sender: FDA-Public Use
  Company Number: US-TAKEDA-2021TUS045002

PATIENT
  Sex: Male

DRUGS (4)
  1. TEDUGLUTIDE [Suspect]
     Active Substance: TEDUGLUTIDE
     Indication: Product used for unknown indication
     Dosage: 0.425 MILLILITER, QD
     Route: 058
     Dates: start: 20200223
  2. TEDUGLUTIDE [Suspect]
     Active Substance: TEDUGLUTIDE
     Indication: Product used for unknown indication
     Dosage: 0.425 MILLILITER, QD
     Route: 058
     Dates: start: 20200223
  3. TEDUGLUTIDE [Suspect]
     Active Substance: TEDUGLUTIDE
     Indication: Product used for unknown indication
     Dosage: 0.425 MILLILITER, QD
     Route: 058
     Dates: start: 20200223
  4. TEDUGLUTIDE [Suspect]
     Active Substance: TEDUGLUTIDE
     Indication: Product used for unknown indication
     Dosage: 0.425 MILLILITER, QD
     Route: 058
     Dates: start: 20200223

REACTIONS (4)
  - Blood potassium decreased [Recovered/Resolved]
  - Hepatic enzyme increased [Unknown]
  - Pancreatitis [Recovered/Resolved]
  - Back disorder [Not Recovered/Not Resolved]
